FAERS Safety Report 4607101-3 (Version None)
Quarter: 2005Q1

REPORT INFORMATION
  Report Type: 
  Country: None (occurrence: None)
  Receive Date: 20050310
  Receipt Date: 20050225
  Transmission Date: 20050727
  Serious: Yes (Hospitalization)
  Sender: FDA-Public Use
  Company Number: 200415688BCC

PATIENT
  Age: 48 Year
  Sex: Female
  Weight: 80.7403 kg

DRUGS (7)
  1. ALKA-SELTZER PLUS EFFERVESCENT NIGHT TIME COLD [Suspect]
     Indication: NASOPHARYNGITIS
     Dosage: 500/20/10/12.5 MG, QD, ORAL
     Route: 048
     Dates: start: 20041119, end: 20041120
  2. METOPROLOL TARTRATE [Concomitant]
  3. SPIRONOLACTONE [Concomitant]
  4. LISINOPRIL [Concomitant]
  5. VICODIN [Concomitant]
  6. METHADONE [Concomitant]
  7. PEPCID [Concomitant]

REACTIONS (7)
  - ARTERIAL THROMBOSIS [None]
  - BLOOD PRESSURE SYSTOLIC INCREASED [None]
  - CORONARY ARTERY STENOSIS [None]
  - HAEMOGLOBIN DECREASED [None]
  - HYPOAESTHESIA [None]
  - MYOCARDIAL INFARCTION [None]
  - VOMITING [None]
